FAERS Safety Report 7752883-5 (Version None)
Quarter: 2011Q3

REPORT INFORMATION
  Report Type: 
  Country: None (occurrence: None)
  Receive Date: 20110915
  Receipt Date: 20110905
  Transmission Date: 20111222
  Serious: Yes (Hospitalization)
  Sender: FDA-Public Use
  Company Number: GB-ALLERGAN-1111815US

PATIENT
  Sex: Female

DRUGS (2)
  1. VISTABEL [Suspect]
     Indication: SKIN WRINKLING
     Dosage: UNK
     Dates: start: 20110903, end: 20110903
  2. JUVEDERM [Concomitant]

REACTIONS (4)
  - PRURITUS [None]
  - OEDEMA [None]
  - ERYTHEMA [None]
  - NAUSEA [None]
